FAERS Safety Report 5947560 (Version 10)
Quarter: 2019Q1

REPORT INFORMATION
  Report Type: Spontaneous
  Country: US (occurrence: US)
  Receive Date: 20051220
  Receipt Date: 20190219
  Transmission Date: 20190418
  Serious: Yes (Hospitalization, Disabling, Other)
  Sender: FDA-Public Use
  Company Number: US-009507513-0411USA02294

PATIENT
  Sex: Male
  Weight: 92.99 kg

DRUGS (8)
  1. CELEBREX [Suspect]
     Active Substance: CELECOXIB
     Indication: PRODUCT USED FOR UNKNOWN INDICATION
     Dosage: UNK UNK, UNKNOWN
     Route: 065
  2. MECLIZINE [Concomitant]
     Active Substance: MECLIZINE HYDROCHLORIDE
     Indication: PRODUCT USED FOR UNKNOWN INDICATION
     Dosage: UNK UNK, UNKNOWN
     Route: 065
  3. VIOXX [Suspect]
     Active Substance: ROFECOXIB
     Indication: ARTHRITIS
     Dosage: 50 MG, QD
     Route: 048
     Dates: start: 1999, end: 2007
  4. RISPERDAL [Suspect]
     Active Substance: RISPERIDONE
     Indication: PRODUCT USED FOR UNKNOWN INDICATION
     Dosage: 2 MG, BID
     Route: 048
  5. RISPERDAL [Suspect]
     Active Substance: RISPERIDONE
     Dosage: 1 MG, UNK
     Route: 048
  6. IBUPROFEN. [Concomitant]
     Active Substance: IBUPROFEN
     Indication: PRODUCT USED FOR UNKNOWN INDICATION
     Dosage: UNK UNK, UNKNOWN
     Route: 065
  7. VIOXX [Suspect]
     Active Substance: ROFECOXIB
     Indication: COSTOCHONDRITIS
     Dosage: 25 MG, QD
     Route: 048
     Dates: start: 1999, end: 2007
  8. VIOXX [Suspect]
     Active Substance: ROFECOXIB
     Indication: JOINT DISLOCATION
     Dosage: 25 MG, BID
     Route: 048
     Dates: start: 1999, end: 2007

REACTIONS (79)
  - Muscle strain [Unknown]
  - Chest discomfort [Unknown]
  - Head injury [Unknown]
  - Musculoskeletal pain [Unknown]
  - Heart rate increased [Not Recovered/Not Resolved]
  - Asthenia [Unknown]
  - Blood pressure increased [Unknown]
  - Myalgia [Unknown]
  - Chills [Unknown]
  - Hypersensitivity [Unknown]
  - Disability [Not Recovered/Not Resolved]
  - Mastitis [Unknown]
  - Otitis media [Unknown]
  - Pneumonia [Unknown]
  - Visual impairment [Unknown]
  - Dry mouth [Unknown]
  - Hypoaesthesia [Unknown]
  - Loss of consciousness [Unknown]
  - Myocardial infarction [Recovered/Resolved]
  - Cerebrovascular accident [Unknown]
  - Urethritis [Unknown]
  - Arthritis [Unknown]
  - Rhinitis allergic [Unknown]
  - Gastritis [Unknown]
  - Psychomotor hyperactivity [Not Recovered/Not Resolved]
  - Breast mass [Unknown]
  - Liver injury [Unknown]
  - Schizophrenia [Unknown]
  - Lacrimation increased [Unknown]
  - Dislocation of vertebra [Unknown]
  - Memory impairment [Unknown]
  - Heart rate irregular [Unknown]
  - Pruritus [Not Recovered/Not Resolved]
  - Scoliosis [Unknown]
  - Rhinitis allergic [Unknown]
  - Back pain [Unknown]
  - Adverse event [Unknown]
  - Feeling hot [Not Recovered/Not Resolved]
  - Blood calcium decreased [Unknown]
  - Anxiety [Unknown]
  - Schizophrenia [Unknown]
  - Muscle spasms [Unknown]
  - Contusion [Unknown]
  - Dysphagia [Unknown]
  - Gastritis [Unknown]
  - Psychotic disorder [Unknown]
  - Conjunctivitis [Unknown]
  - Cardiac disorder [Unknown]
  - Eye disorder [Unknown]
  - Headache [Unknown]
  - Skin laceration [Unknown]
  - Neck pain [Unknown]
  - Upper respiratory tract infection [Unknown]
  - Schizophrenia [Unknown]
  - Drug hypersensitivity [Unknown]
  - Pruritus [Unknown]
  - Cough [Unknown]
  - Rhinitis allergic [Unknown]
  - Limb injury [Unknown]
  - Chest pain [Not Recovered/Not Resolved]
  - Electrocardiogram change [Unknown]
  - Pain [Unknown]
  - Malaise [Unknown]
  - Musculoskeletal disorder [Unknown]
  - Headache [Unknown]
  - Depression [Unknown]
  - Dizziness [Unknown]
  - Myositis [Unknown]
  - Heart rate increased [Unknown]
  - Impatience [Unknown]
  - Kidney infection [Unknown]
  - Spinal flattening [Unknown]
  - Renal disorder [Unknown]
  - Arthritis [Unknown]
  - Breast enlargement [Not Recovered/Not Resolved]
  - Skin irritation [Unknown]
  - Feeling jittery [Unknown]
  - Nausea [Not Recovered/Not Resolved]
  - Dizziness [Unknown]

NARRATIVE: CASE EVENT DATE: 20010921
